FAERS Safety Report 4558481-9 (Version None)
Quarter: 2005Q1

REPORT INFORMATION
  Report Type: 
  Country: None (occurrence: None)
  Receive Date: 20050119
  Receipt Date: 20050104
  Transmission Date: 20050727
  Serious: Yes (Disabling)
  Sender: FDA-Public Use
  Company Number: SGB1-2004-00457

PATIENT
  Age: 41 Year
  Sex: Female
  Weight: 65 kg

DRUGS (2)
  1. AGRYLIN [Suspect]
     Indication: THROMBOCYTHAEMIA
     Dosage: 1.5 MG, 2X/DAY:BID
     Dates: start: 20040302, end: 20041214
  2. LITALIR (HYDROXYCARBAMIDE) [Concomitant]

REACTIONS (4)
  - HYPOTENSION [None]
  - ORTHOSTATIC HYPOTENSION [None]
  - PALPITATIONS [None]
  - TACHYCARDIA [None]
